FAERS Safety Report 5099427-7 (Version None)
Quarter: 2006Q3

REPORT INFORMATION
  Report Type: 
  Country: None (occurrence: None)
  Receive Date: 20060905
  Receipt Date: 20060905
  Transmission Date: 20061208
  Serious: Yes (Other)
  Sender: FDA-Public Use
  Company Number: None

PATIENT
  Age: 27 Year
  Sex: Female

DRUGS (6)
  1. TUBERCULIN PURIFIED PROTEIN DERIYAFIVE (MANTOUX) TUBERSOL [Suspect]
     Dosage: INTERDERMAL (L) FOREARM
     Route: 023
     Dates: start: 20060822
  2. HEP B [Concomitant]
  3. T DAP [Concomitant]
  4. MELATONIN [Concomitant]
  5. PROZAC [Concomitant]
  6. MULTI-VITAMIN [Concomitant]

REACTIONS (3)
  - INJECTION SITE ERYTHEMA [None]
  - INJECTION SITE PRURITUS [None]
  - INJECTION SITE URTICARIA [None]
